FAERS Safety Report 5025476-0 (Version None)
Quarter: 2006Q2

REPORT INFORMATION
  Report Type: 
  Country: None (occurrence: None)
  Receive Date: 20060608
  Receipt Date: 20060602
  Transmission Date: 20061013
  Serious: Yes (Hospitalization)
  Sender: FDA-Public Use
  Company Number: S06-USA-02125-01

PATIENT
  Age: 83 Year
  Sex: Female

DRUGS (7)
  1. CELEXA [Suspect]
     Indication: DEPRESSION
     Dates: end: 20060101
  2. DIGOXIN [Suspect]
     Indication: ATRIAL FIBRILLATION
     Dosage: 0.25 MG QD
  3. LASIX [Concomitant]
  4. ASPIRIN [Concomitant]
  5. FOSAMAX [Concomitant]
  6. TAMOXIFEN [Concomitant]
  7. METOPROLOL TARTRATE [Concomitant]

REACTIONS (6)
  - ANOREXIA [None]
  - DIZZINESS [None]
  - FALL [None]
  - NAUSEA [None]
  - ORTHOSTATIC HYPOTENSION [None]
  - THERAPEUTIC AGENT TOXICITY [None]
